FAERS Safety Report 10564026 (Version 4)
Quarter: 2014Q4

REPORT INFORMATION
  Report Type: Spontaneous
  Country: IN (occurrence: IN)
  Receive Date: 20141104
  Receipt Date: 20141217
  Transmission Date: 20150529
  Serious: Yes (Other)
  Sender: FDA-Public Use
  Company Number: IN-PFIZER INC-2014245784

PATIENT
  Age: 60 Year
  Sex: Male

DRUGS (1)
  1. SUTENT [Suspect]
     Active Substance: SUNITINIB MALATE
     Indication: METASTATIC RENAL CELL CARCINOMA
     Dosage: 50 MG, 1X/DAY
     Route: 048
     Dates: start: 20140717, end: 20141102

REACTIONS (11)
  - Platelet count decreased [Recovering/Resolving]
  - Pain in extremity [Not Recovered/Not Resolved]
  - Hypertension [Recovering/Resolving]
  - Dysgeusia [Not Recovered/Not Resolved]
  - Hepatic enzyme increased [Unknown]
  - Metastatic renal cell carcinoma [Unknown]
  - Neutropenia [Unknown]
  - Cytopenia [Unknown]
  - Oral pain [Recovered/Resolved]
  - Palmar-plantar erythrodysaesthesia syndrome [Unknown]
  - Disease progression [Unknown]
